FAERS Safety Report 20131562 (Version 1)
Quarter: 2021Q4

REPORT INFORMATION
  Report Type: Spontaneous
  Country: US (occurrence: None)
  Receive Date: 20211130
  Receipt Date: 20211130
  Transmission Date: 20220303
  Serious: Yes (Death)
  Sender: FDA-Public Use
  Company Number: None

PATIENT
  Age: 60 Year
  Sex: Female

DRUGS (3)
  1. HUMIRA [Suspect]
     Active Substance: ADALIMUMAB
     Indication: Orthostatic hypotension
     Dosage: OTHER QUANTITY : 40MG/0.8ML;?FREQUENCY : WEEKLY;?
     Route: 058
     Dates: start: 20180914, end: 20211113
  2. BROVANA NEB [Concomitant]
  3. OMEPRAZOLE TAB [Concomitant]

REACTIONS (1)
  - Death [None]

NARRATIVE: CASE EVENT DATE: 20211129
